FAERS Safety Report 16326979 (Version 8)
Quarter: 2019Q4

REPORT INFORMATION
  Report Type: Spontaneous
  Country: US (occurrence: US)
  Receive Date: 20190517
  Receipt Date: 20191201
  Transmission Date: 20200122
  Serious: Yes (Hospitalization, Other)
  Sender: FDA-Public Use
  Company Number: US-SA-2019SA132456

PATIENT
  Age: 63 Year
  Sex: Male

DRUGS (1)
  1. KEVZARA [Suspect]
     Active Substance: SARILUMAB
     Dosage: 200 MG, QOW
     Route: 058
     Dates: start: 201903, end: 2019

REACTIONS (5)
  - Pain [Unknown]
  - Inflammation [Unknown]
  - Peripheral swelling [Unknown]
  - Localised infection [Unknown]
  - Prostate infection [Unknown]

NARRATIVE: CASE EVENT DATE: 2019
